FAERS Safety Report 5420654-0 (Version None)
Quarter: 2007Q3

REPORT INFORMATION
  Report Type: 
  Country: None (occurrence: None)
  Receive Date: 20070816
  Receipt Date: 20070803
  Transmission Date: 20080115
  Serious: Yes (Death)
  Sender: FDA-Public Use
  Company Number: SPV1-2007-03740

PATIENT

DRUGS (1)
  1. ADDERALL 10 [Suspect]

REACTIONS (1)
  - DEATH [None]
